FAERS Safety Report 8779775 (Version 2)
Quarter: 2012Q4

REPORT INFORMATION
  Report Type: Spontaneous
  Country: AU (occurrence: None)
  Receive Date: 20120829
  Receipt Date: 20120906
  Transmission Date: 20130627
  Serious: Yes (Hospitalization, Other)
  Sender: FDA-Public Use
  Company Number: 2012AP002584

PATIENT
  Age: 63 Year
  Sex: Male

DRUGS (1)
  1. PRAMIPEXOLE [Suspect]
     Indication: PARKINSON^S DISEASE

REACTIONS (7)
  - Hypersexuality [None]
  - Chorea [None]
  - Penis injury [None]
  - Urinary retention [None]
  - Penile swelling [None]
  - Penis disorder [None]
  - Emotional distress [None]
